FAERS Safety Report 9164753 (Version 1)
Quarter: 2013Q1

REPORT INFORMATION
  Report Type: Spontaneous
  Country: US (occurrence: US)
  Receive Date: 20130315
  Receipt Date: 20130315
  Transmission Date: 20140127
  Serious: No
  Sender: FDA-Public Use
  Company Number: US-PFIZER INC-2013085140

PATIENT
  Age: 60 Year
  Sex: Female

DRUGS (2)
  1. GABAPENTIN [Suspect]
     Dosage: 600 MG, 4X/DAY
  2. CYCLOBENZAPRINE [Suspect]
     Dosage: UNK

REACTIONS (1)
  - Drug intolerance [Unknown]
